FAERS Safety Report 4452708-X (Version None)
Quarter: 2004Q3

REPORT INFORMATION
  Report Type: 
  Country: None (occurrence: None)
  Receive Date: 20040813
  Receipt Date: 20040421
  Transmission Date: 20050211
  Serious: No
  Sender: FDA-Public Use
  Company Number: S04-USA-03481-01

PATIENT
  Age: 79 Year
  Sex: Male

DRUGS (2)
  1. NAMENDA [Suspect]
     Indication: DEMENTIA
     Dates: start: 20040401
  2. MEMANTINE HCL [Suspect]
     Indication: DEMENTIA
     Dates: start: 20020101, end: 20040401

REACTIONS (1)
  - RASH GENERALISED [None]
